FAERS Safety Report 4364565-0 (Version None)
Quarter: 2004Q2

REPORT INFORMATION
  Report Type: 
  Country: None (occurrence: None)
  Receive Date: 20040525
  Receipt Date: 20040514
  Transmission Date: 20050107
  Serious: Yes (Hospitalization)
  Sender: FDA-Public Use
  Company Number: SE-MERCK-0405SWE00009

PATIENT
  Age: 78 Year
  Sex: Female

DRUGS (17)
  1. ACETAMINOPHEN [Concomitant]
     Route: 065
  2. ALENDRONATE SODIUM [Suspect]
     Route: 048
     Dates: start: 20040120, end: 20040226
  3. AMDINOCILLIN PIVOXIL HCL [Suspect]
     Indication: URINARY TRACT INFECTION
     Route: 048
     Dates: start: 20040120
  4. AMITRIPTYLINE HYDROCHLORIDE [Concomitant]
     Route: 065
  5. CALCIUM CARBONATE [Concomitant]
     Route: 065
  6. CARBOMER [Concomitant]
     Route: 065
  7. CLOPIDOGREL BISULFATE [Concomitant]
     Route: 065
  8. FUROSEMIDE [Concomitant]
     Route: 065
  9. ISOSORBIDE MONONITRATE [Concomitant]
     Route: 065
  10. KARAYA GUM [Concomitant]
     Route: 065
  11. LANSOPRAZOLE [Concomitant]
     Route: 065
  12. LEVOTHYROXINE SODIUM [Concomitant]
     Route: 065
  13. LOSARTAN POTASSIUM [Concomitant]
     Route: 065
  14. METOPROLOL TARTRATE [Concomitant]
     Route: 065
  15. PREDNISOLONE [Concomitant]
     Route: 065
  16. TRAMADOL HYDROCHLORIDE [Concomitant]
     Route: 065
  17. ZOLPIDEM TARTRATE [Concomitant]
     Route: 065

REACTIONS (7)
  - BLOOD CREATININE INCREASED [None]
  - C-REACTIVE PROTEIN INCREASED [None]
  - CLOSTRIDIAL INFECTION [None]
  - DYSPHAGIA [None]
  - MYOCARDIAL INFARCTION [None]
  - PYREXIA [None]
  - RASH [None]
